FAERS Safety Report 8046479-8 (Version None)
Quarter: 2012Q1

REPORT INFORMATION
  Report Type: 
  Country: None (occurrence: None)
  Receive Date: 20120113
  Receipt Date: 20120112
  Transmission Date: 20120608
  Serious: Yes (Death, Hospitalization, Other)
  Sender: FDA-Public Use
  Company Number: JP-ABBOTT-11P-087-0872669-00

PATIENT
  Sex: Female
  Weight: 50 kg

DRUGS (16)
  1. PREDNISOLONE [Concomitant]
     Dosage: TOTAL 3MG (2-0-1)
     Route: 048
     Dates: start: 20091230
  2. FOLIC ACID [Concomitant]
     Indication: RHEUMATOID ARTHRITIS
     Route: 048
  3. ALENDRONATE SODIUM [Concomitant]
     Indication: OSTEOPOROSIS
     Route: 048
  4. IRSOGLADINE MALEATE [Concomitant]
     Indication: GASTRIC DISORDER
     Dosage: 4MG DAILY, 2MG, 2 IN 1 DAY
     Route: 048
     Dates: start: 20110713
  5. SOFALCONE [Concomitant]
     Indication: GASTRIC DISORDER
     Dosage: 200MG DAILY, 100MG, 2 IN 1 DAY
     Route: 048
     Dates: end: 20110531
  6. HUMIRA [Suspect]
     Indication: RHEUMATOID ARTHRITIS
     Route: 058
     Dates: start: 20090602, end: 20110830
  7. METHOTREXATE [Concomitant]
     Indication: RHEUMATOID ARTHRITIS
     Route: 048
  8. SOFALCONE [Concomitant]
     Indication: PROPHYLAXIS
  9. RABEPRAZOLE SODIUM [Concomitant]
     Indication: GASTRIC DISORDER
     Route: 048
     Dates: start: 20110601
  10. PYRIDOXAL PHOSPHATE HYDRATE [Concomitant]
     Indication: ADVERSE DRUG REACTION
  11. ETODOLAC [Concomitant]
     Indication: RHEUMATOID ARTHRITIS
     Route: 048
  12. IRSOGLADINE MALEATE [Concomitant]
     Indication: PROPHYLAXIS
  13. PREDNISOLONE [Concomitant]
     Indication: RHEUMATOID ARTHRITIS
     Route: 048
     Dates: start: 20091229
  14. ISONIAZID [Concomitant]
     Indication: ANTIBIOTIC PROPHYLAXIS
     Route: 048
  15. RABEPRAZOLE SODIUM [Concomitant]
     Indication: PROPHYLAXIS
  16. PYRIDOXAL PHOSPHATE HYDRATE [Concomitant]
     Indication: PROPHYLAXIS
     Route: 048

REACTIONS (8)
  - PANCREATIC CARCINOMA METASTATIC [None]
  - INSOMNIA [None]
  - GENERAL PHYSICAL HEALTH DETERIORATION [None]
  - BACK PAIN [None]
  - ABDOMINAL PAIN UPPER [None]
  - SCOLIOSIS [None]
  - PANCREATIC CARCINOMA [None]
  - HEPATIC NEOPLASM MALIGNANT [None]
